FAERS Safety Report 12509542 (Version 1)
Quarter: 2016Q2

REPORT INFORMATION
  Report Type: Spontaneous
  Country: IL (occurrence: IL)
  Receive Date: 20160629
  Receipt Date: 20160629
  Transmission Date: 20160815
  Serious: Yes (Other)
  Sender: FDA-Public Use
  Company Number: IL-AMGEN-ISRSP2016080458

PATIENT
  Age: 49 Year
  Sex: Female

DRUGS (1)
  1. ENBREL [Suspect]
     Active Substance: ETANERCEPT
     Indication: PSORIATIC ARTHROPATHY
     Dosage: 50 MG, 2
     Route: 058
     Dates: start: 20160614

REACTIONS (4)
  - Psoriatic arthropathy [Unknown]
  - Paraesthesia oral [Unknown]
  - Condition aggravated [Unknown]
  - Feeling hot [Unknown]
